FAERS Safety Report 13911726 (Version 1)
Quarter: 2017Q3

REPORT INFORMATION
  Report Type: Spontaneous
  Country: US (occurrence: US)
  Receive Date: 20170828
  Receipt Date: 20170828
  Transmission Date: 20171127
  Serious: No
  Sender: FDA-Public Use
  Company Number: US-ROCHE-1142574

PATIENT
  Sex: Male

DRUGS (2)
  1. NUTROPIN [Suspect]
     Active Substance: SOMATROPIN
     Indication: OFF LABEL USE
  2. NUTROPIN [Suspect]
     Active Substance: SOMATROPIN
     Indication: CROHN^S DISEASE
     Dosage: 0.53 CC DAILY
     Route: 058
     Dates: start: 199801

REACTIONS (3)
  - Malaise [Unknown]
  - Decreased appetite [Unknown]
  - Diarrhoea [Unknown]
